FAERS Safety Report 7954438-6 (Version None)
Quarter: 2011Q4

REPORT INFORMATION
  Report Type: 
  Country: None (occurrence: None)
  Receive Date: 20111202
  Receipt Date: 20111124
  Transmission Date: 20120403
  Serious: Yes (Other)
  Sender: FDA-Public Use
  Company Number: JP-GLAXOSMITHKLINE-B0762190A

PATIENT
  Sex: Male
  Weight: 60 kg

DRUGS (13)
  1. ALDACTONE [Concomitant]
     Dosage: 25MG PER DAY
     Route: 048
  2. CANDESARTAN CILEXETIL [Concomitant]
     Dosage: 4MG PER DAY
     Route: 048
  3. FLUCONAZOLE [Concomitant]
     Dosage: 100MG PER DAY
     Route: 048
  4. IMURAN [Suspect]
     Indication: IDIOPATHIC THROMBOCYTOPENIC PURPURA
     Dosage: 50MG PER DAY
     Route: 048
     Dates: end: 20110123
  5. PROTECADIN [Concomitant]
     Dosage: 10MG PER DAY
     Route: 048
  6. PREDNISOLONE [Concomitant]
     Dosage: 10MG PER DAY
     Route: 048
     Dates: start: 20101227, end: 20110110
  7. PREDNISOLONE [Concomitant]
     Indication: IDIOPATHIC THROMBOCYTOPENIC PURPURA
     Dosage: 15MG PER DAY
     Route: 048
     Dates: end: 20101226
  8. SULFAMETHOXAZOLE AND TRIMETHOPRIM [Concomitant]
     Dosage: 1IUAX PER DAY
     Route: 048
     Dates: start: 20101220
  9. POTASSIUM GLUCONATE TAB [Concomitant]
     Dosage: 15MG PER DAY
     Route: 048
  10. PREDNISOLONE [Concomitant]
     Dosage: 5MG PER DAY
     Route: 048
     Dates: start: 20110111
  11. GASMOTIN [Concomitant]
     Dosage: 15MG PER DAY
     Route: 048
  12. GASCON [Concomitant]
     Dosage: 120MG PER DAY
     Route: 048
  13. PROMACTA [Suspect]
     Indication: IDIOPATHIC THROMBOCYTOPENIC PURPURA
     Dosage: 12.5MG PER DAY
     Route: 048
     Dates: start: 20101220

REACTIONS (10)
  - ALANINE AMINOTRANSFERASE INCREASED [None]
  - BLOOD ALBUMIN DECREASED [None]
  - BLOOD ALKALINE PHOSPHATASE INCREASED [None]
  - BLOOD LACTATE DEHYDROGENASE INCREASED [None]
  - NO THERAPEUTIC RESPONSE [None]
  - ASPARTATE AMINOTRANSFERASE INCREASED [None]
  - LIVER DISORDER [None]
  - BLOOD BILIRUBIN INCREASED [None]
  - GAMMA-GLUTAMYLTRANSFERASE INCREASED [None]
  - CHOLELITHIASIS [None]
